FAERS Safety Report 9679483 (Version 1)
Quarter: 2013Q4

REPORT INFORMATION
  Report Type: Spontaneous
  Country: US (occurrence: US)
  Receive Date: 20131109
  Receipt Date: 20131109
  Transmission Date: 20140711
  Serious: No
  Sender: FDA-Public Use
  Company Number: US-SANOFI-AVENTIS-2013SA055146

PATIENT
  Age: 27 Year
  Sex: Male

DRUGS (1)
  1. ALLEGRA-D, 24 HR [Suspect]
     Indication: MULTIPLE ALLERGIES
     Route: 065
     Dates: start: 20130527, end: 20130527

REACTIONS (6)
  - Back pain [Unknown]
  - Influenza like illness [Unknown]
  - Nausea [Unknown]
  - Dizziness [Unknown]
  - Headache [Unknown]
  - Sleep disorder [Unknown]
